FAERS Safety Report 12239059 (Version 2)
Quarter: 2016Q2

REPORT INFORMATION
  Report Type: Spontaneous
  Country: BR (occurrence: BR)
  Receive Date: 20160405
  Receipt Date: 20160408
  Transmission Date: 20160815
  Serious: Yes (Other)
  Sender: FDA-Public Use
  Company Number: ALCN2016BR002303

PATIENT
  Age: 69 Year
  Sex: Male
  Weight: 59 kg

DRUGS (2)
  1. TIMOLOL FALCON [Suspect]
     Active Substance: TIMOLOL
     Indication: GLAUCOMA
     Route: 047
  2. VIGADEXA [Suspect]
     Active Substance: DEXAMETHASONE SODIUM PHOSPHATE\MOXIFLOXACIN HYDROCHLORIDE
     Indication: POSTOPERATIVE CARE
     Dosage: 1 GTT, BID
     Route: 047
     Dates: start: 20160319, end: 20160324

REACTIONS (2)
  - Intraocular pressure increased [Recovered/Resolved]
  - Cataract [Recovered/Resolved]

NARRATIVE: CASE EVENT DATE: 20160324
